FAERS Safety Report 10968203 (Version 1)
Quarter: 2015Q1

REPORT INFORMATION
  Report Type: Spontaneous
  Country: US (occurrence: US)
  Receive Date: 20150330
  Receipt Date: 20150330
  Transmission Date: 20150721
  Serious: No
  Sender: FDA-Public Use
  Company Number: US-GLAXOSMITHKLINE-US2015040457

PATIENT
  Age: 29 Year
  Sex: Male

DRUGS (2)
  1. SINGULAIR [Concomitant]
     Active Substance: MONTELUKAST SODIUM
  2. ADVAIR DISKUS [Suspect]
     Active Substance: FLUTICASONE PROPIONATE\SALMETEROL XINAFOATE
     Indication: ASTHMA
     Dosage: 1 PUFF(S), BID
     Route: 055
     Dates: start: 200104, end: 201501

REACTIONS (3)
  - Asthenia [Recovered/Resolved]
  - Lethargy [Recovered/Resolved]
  - Limb discomfort [Recovered/Resolved]

NARRATIVE: CASE EVENT DATE: 201411
